FAERS Safety Report 16822995 (Version 1)
Quarter: 2019Q3

REPORT INFORMATION
  Report Type: Spontaneous
  Country: FR (occurrence: FR)
  Receive Date: 20190918
  Receipt Date: 20190918
  Transmission Date: 20191005
  Serious: Yes (Other)
  Sender: FDA-Public Use
  Company Number: FR-JNJFOC-20190921718

PATIENT
  Age: 18 Year
  Sex: Male

DRUGS (1)
  1. TRAMADOL HYDROCHLORIDE. [Suspect]
     Active Substance: TRAMADOL HYDROCHLORIDE
     Indication: PAIN
     Dosage: 2 DF, UNK
     Route: 048
     Dates: start: 20190724, end: 20190819

REACTIONS (4)
  - Apathy [Not Recovered/Not Resolved]
  - Depression [Recovered/Resolved]
  - Anorexia nervosa [Recovered/Resolved]
  - Abulia [Recovered/Resolved]

NARRATIVE: CASE EVENT DATE: 201908
